FAERS Safety Report 13108405 (Version 1)
Quarter: 2017Q1

REPORT INFORMATION
  Report Type: Spontaneous
  Country: US (occurrence: US)
  Receive Date: 20170112
  Receipt Date: 20170112
  Transmission Date: 20170428
  Serious: Yes (Death)
  Sender: FDA-Public Use
  Company Number: None

PATIENT
  Age: 74 Year
  Sex: Male
  Weight: 39.2 kg

DRUGS (2)
  1. CASODEX [Suspect]
     Active Substance: BICALUTAMIDE
     Dates: end: 20161012
  2. LEUPROLIDE ACETATE. [Suspect]
     Active Substance: LEUPROLIDE ACETATE
     Dates: end: 20161101

REACTIONS (8)
  - Chronic respiratory failure [None]
  - Malnutrition [None]
  - Dyspnoea [None]
  - Seizure [None]
  - Fall [None]
  - Unresponsive to stimuli [None]
  - Leukoencephalopathy [None]
  - Therapy cessation [None]

NARRATIVE: CASE EVENT DATE: 20161128
